FAERS Safety Report 11057923 (Version 1)
Quarter: 2015Q2

REPORT INFORMATION
  Report Type: Report from Study
  Country: US (occurrence: US)
  Receive Date: 20150423
  Receipt Date: 20150423
  Transmission Date: 20150821
  Serious: Yes (Hospitalization, Other)
  Sender: FDA-Public Use
  Company Number: US-ROCHE-1565147

PATIENT
  Age: 7 Year
  Sex: Female
  Weight: 17.8 kg

DRUGS (21)
  1. TYLENOL [Concomitant]
     Active Substance: ACETAMINOPHEN
     Indication: DISCOMFORT
  2. ORAPRED [Concomitant]
     Active Substance: PREDNISOLONE SODIUM PHOSPHATE
     Route: 065
     Dates: start: 20140727
  3. DIURIL (UNITED STATES) [Concomitant]
     Route: 048
     Dates: start: 20141106
  4. COLACE [Concomitant]
     Active Substance: DOCUSATE SODIUM
     Route: 065
  5. BACTROBAN [Concomitant]
     Active Substance: MUPIROCIN\MUPIROCIN CALCIUM
     Dosage: APPLY TOPICALLY TWO ON 10/MAR/2015 TWICE DAILY UNTIL CLEAR.
     Route: 061
     Dates: start: 20150310
  6. CELLCEPT [Suspect]
     Active Substance: MYCOPHENOLATE MOFETIL\MYCOPHENOLATE MOFETIL HYDROCHLORIDE
     Indication: TRANSPLANT
     Dosage: 160 MG/ML
     Route: 048
  7. MIRALAX [Concomitant]
     Active Substance: POLYETHYLENE GLYCOL 3350
     Dosage: 17 GRAMS/DOSE 1 PACKET DAILY.
     Route: 065
  8. PRELONE [Concomitant]
     Active Substance: PREDNISOLONE
     Dosage: 5 MG/ML
     Route: 048
     Dates: start: 20141219, end: 20150404
  9. VALCYTE [Concomitant]
     Active Substance: VALGANCICLOVIR HYDROCHLORIDE
     Dosage: 50 MG/ML
     Route: 048
     Dates: start: 20150203
  10. ZYVOX [Concomitant]
     Active Substance: LINEZOLID
     Route: 065
  11. TYLENOL [Concomitant]
     Active Substance: ACETAMINOPHEN
     Indication: PYREXIA
     Dosage: (160 MG/5 ML) WHEN REQUIRED
     Route: 048
  12. FURADANTIN [Concomitant]
     Active Substance: NITROFURANTOIN
     Dosage: 25MG/ML DAILY.
     Route: 048
  13. GLYCOLAX [Concomitant]
     Active Substance: POLYETHYLENE GLYCOL 3350
     Dosage: 17 GRAMS/DOSE USE AS DIRECTED
     Route: 065
     Dates: start: 20150215
  14. PROGRAF [Concomitant]
     Active Substance: TACROLIMUS\TACROLIMUS ANHYDROUS
     Route: 048
  15. FERROUS SULFATE [Concomitant]
     Active Substance: FERROUS SULFATE\FERROUS SULFATE, DRIED
     Dosage: 15 MG IRON (75 MG)/ML DROPS
     Route: 048
     Dates: start: 20140603
  16. PROGRAF [Concomitant]
     Active Substance: TACROLIMUS\TACROLIMUS ANHYDROUS
     Dosage: 1 MG/ML TWO TIMES DAILY 8 AM AND 8 PM.
     Route: 048
     Dates: start: 20141016
  17. DITROPAN [Concomitant]
     Active Substance: OXYBUTYNIN CHLORIDE
     Dosage: AS NEEDED
     Route: 048
     Dates: start: 20140727, end: 20140826
  18. CEFTRIAXONE. [Concomitant]
     Active Substance: CEFTRIAXONE
     Route: 065
  19. CIDOFOVIR. [Concomitant]
     Active Substance: CIDOFOVIR
     Dosage: AS REQUIRED
     Route: 061
     Dates: end: 20150213
  20. MACROBID (UNITED STATES) [Concomitant]
     Dosage: 100 MG
     Route: 065
  21. SULFAMETHOXAZOLE/TRIMETHOPRIM [Concomitant]
     Active Substance: SULFAMETHOXAZOLE\TRIMETHOPRIM
     Dosage: 200-40MG/5ML.
     Route: 065

REACTIONS (3)
  - Laboratory test abnormal [Unknown]
  - Sepsis [Unknown]
  - Urinary tract infection bacterial [Unknown]

NARRATIVE: CASE EVENT DATE: 20150404
